FAERS Safety Report 12604679 (Version 2)
Quarter: 2016Q3

REPORT INFORMATION
  Report Type: Report from Study
  Country: CA (occurrence: CA)
  Receive Date: 20160728
  Receipt Date: 20160812
  Transmission Date: 20161109
  Serious: No
  Sender: FDA-Public Use
  Company Number: CA-ABBVIE-16K-028-1685488-00

PATIENT
  Age: 19 Year
  Sex: Female
  Weight: 59.02 kg

DRUGS (2)
  1. IMURAN [Concomitant]
     Active Substance: AZATHIOPRINE
     Indication: PRODUCT USED FOR UNKNOWN INDICATION
     Route: 048
  2. HUMIRA [Suspect]
     Active Substance: ADALIMUMAB
     Indication: CROHN^S DISEASE
     Route: 058
     Dates: start: 20130604

REACTIONS (1)
  - Food allergy [Recovered/Resolved]

NARRATIVE: CASE EVENT DATE: 20160715
